FAERS Safety Report 21981464 (Version 6)
Quarter: 2023Q2

REPORT INFORMATION
  Report Type: Spontaneous
  Country: CA (occurrence: CA)
  Receive Date: 20230211
  Receipt Date: 20230516
  Transmission Date: 20230722
  Serious: Yes (Hospitalization, Other)
  Sender: FDA-Public Use
  Company Number: CA-AMGEN-CANSP2022221941

PATIENT
  Age: 60 Year
  Sex: Female

DRUGS (2)
  1. REPATHA [Suspect]
     Active Substance: EVOLOCUMAB
     Indication: Product used for unknown indication
     Dosage: 140 MILLIGRAM PER MILLILITER
     Route: 065
     Dates: start: 20221204
  2. METHOTREXATE SODIUM [Concomitant]
     Active Substance: METHOTREXATE SODIUM

REACTIONS (33)
  - Throat tightness [Unknown]
  - Autoimmune disorder [Unknown]
  - Visual impairment [Not Recovered/Not Resolved]
  - Periorbital swelling [Unknown]
  - Madarosis [Unknown]
  - Skin erosion [Unknown]
  - Coeliac disease [Unknown]
  - Skin exfoliation [Unknown]
  - Alopecia [Unknown]
  - Cross sensitivity reaction [Unknown]
  - Quality of life decreased [Unknown]
  - Food allergy [Unknown]
  - Feeding disorder [Unknown]
  - Eye irritation [Unknown]
  - Skin induration [Unknown]
  - Swelling of eyelid [Not Recovered/Not Resolved]
  - Erythema [Recovering/Resolving]
  - Swelling face [Unknown]
  - Urticaria [Not Recovered/Not Resolved]
  - Dermatitis [Unknown]
  - Pain [Unknown]
  - Fluid retention [Unknown]
  - Paraesthesia [Unknown]
  - Dry skin [Unknown]
  - Skin burning sensation [Unknown]
  - Eyelid rash [Unknown]
  - Sleep disorder due to general medical condition, insomnia type [Unknown]
  - Dry mouth [Recovered/Resolved]
  - Hair texture abnormal [Unknown]
  - Hair disorder [Unknown]
  - Nail disorder [Unknown]
  - Pruritus [Unknown]
  - Rash [Unknown]

NARRATIVE: CASE EVENT DATE: 20221204
